FAERS Safety Report 20012261 (Version 1)
Quarter: 2021Q4

REPORT INFORMATION
  Report Type: Spontaneous
  Country: FR (occurrence: FR)
  Receive Date: 20211029
  Receipt Date: 20211029
  Transmission Date: 20220303
  Serious: Yes (Life-Threatening, Other)
  Sender: FDA-Public Use
  Company Number: None

PATIENT
  Age: 59 Year
  Sex: Male

DRUGS (1)
  1. OXALIPLATIN [Suspect]
     Active Substance: OXALIPLATIN
     Indication: Non-Hodgkin^s lymphoma
     Dosage: 1 DOSAGE FORM, CYCLE
     Route: 041
     Dates: start: 20210322, end: 20210503

REACTIONS (1)
  - Venoocclusive disease [Recovering/Resolving]

NARRATIVE: CASE EVENT DATE: 20210613
